FAERS Safety Report 7044692-X (Version None)
Quarter: 2010Q4

REPORT INFORMATION
  Report Type: 
  Country: None (occurrence: None)
  Receive Date: 20101013
  Receipt Date: 20101013
  Transmission Date: 20110411
  Serious: Yes (Death, Life-Threatening, Other)
  Sender: FDA-Public Use
  Company Number: None

PATIENT
  Age: 70 Year
  Sex: Female
  Weight: 92 kg

DRUGS (2)
  1. NOVOSEVEN [Suspect]
     Indication: FACTOR VIII DEFICIENCY
     Dosage: 8.3MG Q 2 HOURS IV BOLUS
     Route: 040
     Dates: start: 20101005, end: 20101006
  2. NOVOSEVEN [Suspect]
     Indication: HAEMORRHAGE
     Dosage: 8.3MG Q 2 HOURS IV BOLUS
     Route: 040
     Dates: start: 20101005, end: 20101006

REACTIONS (6)
  - ATRIAL FIBRILLATION [None]
  - CEREBRAL ARTERY STENOSIS [None]
  - CEREBRAL INFARCTION [None]
  - MYOCARDIAL INFARCTION [None]
  - TROPONIN INCREASED [None]
  - VERTEBRAL ARTERY OCCLUSION [None]
